FAERS Safety Report 13488727 (Version 1)
Quarter: 2017Q2

REPORT INFORMATION
  Report Type: Spontaneous
  Country: GB (occurrence: GB)
  Receive Date: 20170427
  Receipt Date: 20170427
  Transmission Date: 20170830
  Serious: Yes (Other)
  Sender: FDA-Public Use
  Company Number: GB-VIIV HEALTHCARE LIMITED-GB2017061086

PATIENT
  Age: 23 Year
  Sex: Male
  Weight: 75 kg

DRUGS (1)
  1. TRIUMEQ [Suspect]
     Active Substance: ABACAVIR SULFATE\DOLUTEGRAVIR SODIUM\LAMIVUDINE
     Indication: ASYMPTOMATIC HIV INFECTION
     Dosage: 1 DF, UNK
     Route: 048
     Dates: start: 20151125, end: 20170321

REACTIONS (6)
  - Suicide attempt [Recovered/Resolved]
  - Disturbance in attention [Recovered/Resolved]
  - Intentional overdose [Recovered/Resolved]
  - Depressed mood [Recovered/Resolved]
  - Feeling abnormal [Recovered/Resolved]
  - Memory impairment [Recovered/Resolved]

NARRATIVE: CASE EVENT DATE: 201607
